FAERS Safety Report 12268328 (Version 1)
Quarter: 2016Q2

REPORT INFORMATION
  Report Type: Spontaneous
  Country: US (occurrence: US)
  Receive Date: 20160414
  Receipt Date: 20160414
  Transmission Date: 20160815
  Serious: No
  Sender: FDA-Public Use
  Company Number: ADR-2015-00431

PATIENT
  Sex: Female

DRUGS (5)
  1. OXYCONTIN [Suspect]
     Active Substance: OXYCODONE HYDROCHLORIDE
  2. LIORESAL [Suspect]
     Active Substance: BACLOFEN
     Route: 037
  3. LIORESAL [Suspect]
     Active Substance: BACLOFEN
     Route: 037
  4. OXYCODONE [Suspect]
     Active Substance: OXYCODONE
  5. FENTANYL. [Suspect]
     Active Substance: FENTANYL
     Route: 003

REACTIONS (6)
  - Pain [Unknown]
  - Headache [Unknown]
  - Intervertebral disc protrusion [Unknown]
  - Musculoskeletal discomfort [Unknown]
  - Muscle spasticity [Unknown]
  - No therapeutic response [Unknown]
